FAERS Safety Report 6478745-1 (Version None)
Quarter: 2009Q4

REPORT INFORMATION
  Report Type: 
  Country: None (occurrence: None)
  Receive Date: 20091207
  Receipt Date: 20091202
  Transmission Date: 20100525
  Serious: Yes (Hospitalization)
  Sender: FDA-Public Use
  Company Number: US-BRISTOL-MYERS SQUIBB COMPANY-14879647

PATIENT
  Age: 48 Year
  Sex: Female
  Weight: 70 kg

DRUGS (8)
  1. COUMADIN [Suspect]
     Dosage: NOV03-22FEB09 7.5MG,1X/DAY,ORAL:09MAR09.
     Route: 065
     Dates: start: 20031101
  2. TYLENOL (CAPLET) [Suspect]
     Route: 065
     Dates: start: 20090221, end: 20090223
  3. SILDENAFIL [Concomitant]
     Indication: PULMONARY HYPERTENSION
     Dosage: 09JL-21AG,21AUG-18SEP08,18SP-23OCT,07NV-20NV,21NV08-22FEB09,26FEB-28FEB,28FE-03MA-ONGOING
     Route: 048
     Dates: start: 20080709, end: 20081023
  4. DILAUDID [Concomitant]
  5. OXYCODONE HCL [Concomitant]
  6. OXYCONTIN [Concomitant]
  7. OMEPRAZOLE [Concomitant]
  8. FOLATE [Concomitant]

REACTIONS (1)
  - ACUTE HEPATIC FAILURE [None]
